FAERS Safety Report 7577578-2 (Version None)
Quarter: 2011Q2

REPORT INFORMATION
  Report Type: 
  Country: None (occurrence: None)
  Receive Date: 20110628
  Receipt Date: 20110616
  Transmission Date: 20111010
  Serious: Yes (Other)
  Sender: FDA-Public Use
  Company Number: US-SANOFI-AVENTIS-2011SA040077

PATIENT
  Age: 56 Year
  Sex: Female

DRUGS (2)
  1. LANTUS [Suspect]
     Dosage: DOSE:45 UNIT(S)
     Route: 058
     Dates: start: 20091201
  2. LANTUS [Suspect]
     Route: 058
     Dates: end: 20091201

REACTIONS (3)
  - WRIST FRACTURE [None]
  - CARPAL TUNNEL DECOMPRESSION [None]
  - FALL [None]
